FAERS Safety Report 18665640 (Version 1)
Quarter: 2020Q4

REPORT INFORMATION
  Report Type: Other
  Country: CA (occurrence: CA)
  Receive Date: 20201226
  Receipt Date: 20201226
  Transmission Date: 20210114
  Serious: Yes (Hospitalization)
  Sender: FDA-Public Use
  Company Number: CA-AJANTA PHARMA USA INC.-2103490

PATIENT
  Age: 52 Year
  Sex: Female

DRUGS (2)
  1. DULOXETINE (ANDA 208706) [Suspect]
     Active Substance: DULOXETINE
     Indication: SCIATICA
  2. XYLOMETAZOLINE [Suspect]
     Active Substance: XYLOMETAZOLINE

REACTIONS (3)
  - Thunderclap headache [Recovered/Resolved]
  - Subarachnoid haemorrhage [Recovered/Resolved]
  - Reversible cerebral vasoconstriction syndrome [Recovered/Resolved]
